FAERS Safety Report 15929210 (Version 1)
Quarter: 2019Q1

REPORT INFORMATION
  Report Type: Spontaneous
  Country: FR (occurrence: FR)
  Receive Date: 20190206
  Receipt Date: 20190206
  Transmission Date: 20190417
  Serious: Yes (Other)
  Sender: FDA-Public Use
  Company Number: FR-BAUSCH-BL-2019-003594

PATIENT
  Age: 69 Year
  Sex: Male
  Weight: 80 kg

DRUGS (1)
  1. ISUPREL [Suspect]
     Active Substance: ISOPROTERENOL HYDROCHLORIDE
     Indication: PRODUCT USED FOR UNKNOWN INDICATION
     Dosage: AN UNSPECIFIED FREQUENCY (EVERY 1 HOUR)
     Route: 041
     Dates: start: 20181218

REACTIONS (3)
  - Bradycardia [Recovered/Resolved]
  - Syringe issue [Unknown]
  - Product administration interrupted [Unknown]

NARRATIVE: CASE EVENT DATE: 20181219
